FAERS Safety Report 21881278 (Version 1)
Quarter: 2023Q1

REPORT INFORMATION
  Report Type: Spontaneous
  Country: CN (occurrence: CN)
  Receive Date: 20230119
  Receipt Date: 20230119
  Transmission Date: 20230418
  Serious: Yes (Hospitalization, Other)
  Sender: FDA-Public Use
  Company Number: CN-009507513-2301CHN004720

PATIENT
  Age: 55 Year
  Sex: Female
  Weight: 55 kg

DRUGS (1)
  1. CILASTATIN SODIUM\IMIPENEM [Suspect]
     Active Substance: CILASTATIN SODIUM\IMIPENEM
     Indication: Anti-infective therapy
     Dosage: 0.5 G, Q8H, IV DRIP
     Route: 041
     Dates: start: 20221201, end: 20221205

REACTIONS (2)
  - Epilepsy [Recovering/Resolving]
  - Screaming [Recovering/Resolving]

NARRATIVE: CASE EVENT DATE: 20221205
